FAERS Safety Report 14359485 (Version 2)
Quarter: 2018Q1

REPORT INFORMATION
  Report Type: Spontaneous
  Country: US (occurrence: US)
  Receive Date: 20180105
  Receipt Date: 20180202
  Transmission Date: 20180509
  Serious: No
  Sender: FDA-Public Use
  Company Number: US-009507513-1712USA005132

PATIENT
  Age: 29 Year
  Sex: Female
  Weight: 131.97 kg

DRUGS (1)
  1. IMPLANON [Suspect]
     Active Substance: ETONOGESTREL
     Indication: CONTRACEPTION
     Dosage: 1 IMPLANT, QD
     Route: 059
     Dates: start: 20110815, end: 20171206

REACTIONS (6)
  - Incorrect drug administration duration [Unknown]
  - Drug administration error [Unknown]
  - Dysfunctional uterine bleeding [Unknown]
  - Expired product administered [Unknown]
  - Product quality issue [Unknown]
  - Device breakage [Recovered/Resolved]

NARRATIVE: CASE EVENT DATE: 20110815
